FAERS Safety Report 7666195-1 (Version None)
Quarter: 2011Q3

REPORT INFORMATION
  Report Type: 
  Country: None (occurrence: None)
  Receive Date: 20110806
  Receipt Date: 20110421
  Transmission Date: 20111222
  Serious: No
  Sender: FDA-Public Use
  Company Number: US-ABBOTT-11P-163-0721298-00

PATIENT
  Sex: Male
  Weight: 136.2 kg

DRUGS (13)
  1. NIASPAN [Suspect]
     Dosage: 3 YRS AGO STARTED 2 IN THE MORNING AND 2 IN THE EVENING
     Route: 048
     Dates: start: 20080101, end: 20080101
  2. FUROSEMIDE [Concomitant]
     Indication: PRODUCT USED FOR UNKNOWN INDICATION
     Route: 048
  3. WARFARIN SODIUM [Concomitant]
     Indication: PRODUCT USED FOR UNKNOWN INDICATION
  4. NEXIUM [Concomitant]
     Indication: GASTROOESOPHAGEAL REFLUX DISEASE
     Dosage: OTC OMEPRAZOLE - ACID REFLUX
     Dates: end: 20110401
  5. NIASPAN [Suspect]
     Route: 048
     Dates: start: 20080101, end: 20090101
  6. LOPRESSOR [Concomitant]
     Indication: CORONARY ARTERY BYPASS
  7. ZOLOFT [Concomitant]
     Indication: PRODUCT USED FOR UNKNOWN INDICATION
  8. NIASPAN [Suspect]
     Indication: HIGH DENSITY LIPOPROTEIN DECREASED
     Route: 048
     Dates: start: 20090101, end: 20090101
  9. LOPRESSOR [Concomitant]
     Indication: ATRIAL FIBRILLATION
     Dates: start: 20050101
  10. ASPIRIN [Concomitant]
     Indication: PRODUCT USED FOR UNKNOWN INDICATION
  11. NIASPAN [Suspect]
     Indication: BLOOD CHOLESTEROL INCREASED
     Route: 048
     Dates: start: 20090101
  12. OMEPRAZOLE [Concomitant]
     Indication: GASTROOESOPHAGEAL REFLUX DISEASE
     Route: 048
  13. SIMVASTATIN [Concomitant]
     Indication: BLOOD CHOLESTEROL INCREASED

REACTIONS (4)
  - ARTHRALGIA [None]
  - PARAESTHESIA [None]
  - FEELING HOT [None]
  - FLUSHING [None]
